FAERS Safety Report 24876133 (Version 1)
Quarter: 2025Q1

REPORT INFORMATION
  Report Type: Spontaneous
  Country: US (occurrence: US)
  Receive Date: 20250123
  Receipt Date: 20250123
  Transmission Date: 20250408
  Serious: No
  Sender: AUROBINDO
  Company Number: US-AUROBINDO-AUR-APL-2024-016737

PATIENT
  Sex: Female

DRUGS (2)
  1. CEFDINIR [Suspect]
     Active Substance: CEFDINIR
     Indication: Product used for unknown indication
     Route: 065
  2. CEFDINIR [Suspect]
     Active Substance: CEFDINIR
     Route: 065

REACTIONS (2)
  - Product administration error [Unknown]
  - Product storage error [Unknown]
